FAERS Safety Report 5645368-3 (Version None)
Quarter: 2008Q1

REPORT INFORMATION
  Report Type: 
  Country: None (occurrence: None)
  Receive Date: 20080229
  Receipt Date: 20080226
  Transmission Date: 20080703
  Serious: Yes (Other)
  Sender: FDA-Public Use
  Company Number: JP-BAYER-200810310BYL

PATIENT
  Age: 59 Year
  Sex: Male

DRUGS (3)
  1. ASPIRIN [Suspect]
     Route: 048
     Dates: start: 20000101
  2. CALCIUM CHANNEL BLOCKERS [Concomitant]
     Route: 048
     Dates: start: 20000101
  3. BETA BLOCKING AGENTS [Concomitant]
     Route: 048
     Dates: start: 20000101

REACTIONS (1)
  - GASTROOESOPHAGEAL REFLUX DISEASE [None]
